FAERS Safety Report 4410565-1 (Version None)
Quarter: 2004Q3

REPORT INFORMATION
  Report Type: 
  Country: None (occurrence: None)
  Receive Date: 20040726
  Receipt Date: 20040620
  Transmission Date: 20050211
  Serious: Yes (Other)
  Sender: FDA-Public Use
  Company Number: US013482

PATIENT
  Age: 42 Year
  Sex: Male

DRUGS (2)
  1. PROVIGIL [Suspect]
     Dosage: 200 MG TID ORAL
     Route: 048
  2. PROVIGIL [Suspect]
     Dosage: 2000 MG  ORAL
     Route: 048

REACTIONS (3)
  - DEPENDENCE [None]
  - DRUG ABUSER [None]
  - OVERDOSE [None]
